FAERS Safety Report 8817033 (Version 1)
Quarter: 2012Q4

REPORT INFORMATION
  Report Type: Spontaneous
  Country: US (occurrence: None)
  Receive Date: 20121003
  Receipt Date: 20121003
  Transmission Date: 20130627
  Serious: No
  Sender: FDA-Public Use
  Company Number: None

PATIENT
  Age: 35 Year
  Sex: Female
  Weight: 50.8 kg

DRUGS (1)
  1. CITALOPRAM [Suspect]
     Indication: ANXIETY
     Route: 048
     Dates: start: 20120929, end: 20120929

REACTIONS (8)
  - Somnolence [None]
  - Dyspnoea [None]
  - Headache [None]
  - Musculoskeletal discomfort [None]
  - Anxiety [None]
  - Hunger [None]
  - Dizziness [None]
  - Incorrect dose administered [None]
